FAERS Safety Report 8365260-3 (Version None)
Quarter: 2012Q1

REPORT INFORMATION
  Report Type: 
  Country: None (occurrence: None)
  Receive Date: 20120323
  Receipt Date: 20110914
  Transmission Date: 20120608
  Serious: Yes (Disabling, Other)
  Sender: FDA-Public Use
  Company Number: 163-21880-11042512

PATIENT
  Age: 60 Year
  Sex: Female
  Weight: 142.8831 kg

DRUGS (13)
  1. SIMVASTATIN [Concomitant]
  2. DECADRON [Concomitant]
  3. CYTOXAN [Concomitant]
  4. ZOCOR [Concomitant]
  5. GLYBURIDE (GLIBENCLAMIDE) (CAPSULES) [Concomitant]
  6. PHOSPHOBINDER (ALL OTHER THERAPEUTIC PRODUCTS) [Concomitant]
  7. NORCO [Concomitant]
  8. VELCADE [Concomitant]
  9. ZOMETA [Concomitant]
  10. PRILOSEC [Concomitant]
  11. REVLIMID [Suspect]
     Indication: MULTIPLE MYELOMA
     Dosage: 25 MG, D1-D21, PO
     Route: 048
     Dates: end: 20110525
  12. REVLIMID [Suspect]
     Indication: MULTIPLE MYELOMA
     Dosage: 25 MG, D1-D21, PO
     Route: 048
     Dates: start: 20110328, end: 20110418
  13. RENAL VITAMIN (VITAMINS NOS) [Concomitant]

REACTIONS (4)
  - FLUSHING [None]
  - STOMATITIS [None]
  - RASH ERYTHEMATOUS [None]
  - PLATELET COUNT DECREASED [None]
